FAERS Safety Report 7640565-X (Version None)
Quarter: 2011Q3

REPORT INFORMATION
  Report Type: 
  Country: None (occurrence: None)
  Receive Date: 20110728
  Receipt Date: 20110714
  Transmission Date: 20111222
  Serious: No
  Sender: FDA-Public Use
  Company Number: US-BIOGENIDEC-2011BI026341

PATIENT
  Age: 39 Year
  Sex: Female

DRUGS (2)
  1. AVONEX [Suspect]
     Indication: MULTIPLE SCLEROSIS
     Route: 030
     Dates: start: 20030101
  2. AVONEX [Suspect]
     Route: 030
     Dates: start: 20010801, end: 20030101

REACTIONS (10)
  - PAIN [None]
  - MUSCLE SPASMS [None]
  - APHAGIA [None]
  - BACK PAIN [None]
  - VULVOVAGINAL PRURITUS [None]
  - PAIN IN EXTREMITY [None]
  - PYREXIA [None]
  - OROPHARYNGEAL BLISTERING [None]
  - HEADACHE [None]
  - WEIGHT DECREASED [None]
